FAERS Safety Report 19412588 (Version 1)
Quarter: 2021Q2

REPORT INFORMATION
  Report Type: Spontaneous
  Country: JP (occurrence: JP)
  Receive Date: 20210614
  Receipt Date: 20210614
  Transmission Date: 20210717
  Serious: Yes (Other)
  Sender: FDA-Public Use
  Company Number: JP-PURDUE-USA-2021-0269722

PATIENT
  Age: 79 Year
  Sex: Female

DRUGS (1)
  1. NORSPAN [Suspect]
     Active Substance: BUPRENORPHINE
     Indication: ARTHRALGIA
     Dosage: 5 MCG, Q1H
     Route: 062

REACTIONS (3)
  - Rheumatic disorder [Unknown]
  - Pancreatic carcinoma [Unknown]
  - Nausea [Not Recovered/Not Resolved]
